FAERS Safety Report 20449564 (Version 1)
Quarter: 2022Q1

REPORT INFORMATION
  Report Type: Spontaneous
  Country: US (occurrence: None)
  Receive Date: 20220208
  Receipt Date: 20220208
  Transmission Date: 20220423
  Serious: Yes (Hospitalization, Disabling)
  Sender: FDA-Public Use
  Company Number: None

PATIENT
  Age: 76 Year
  Sex: Male
  Weight: 82.35 kg

DRUGS (1)
  1. CIPROFLOXACIN HYDROCHLORIDE [Suspect]
     Active Substance: CIPROFLOXACIN HYDROCHLORIDE
     Indication: Prostate infection
     Dosage: OTHER QUANTITY : 50 TABLET(S);?FREQUENCY : TWICE A DAY;?
     Route: 048
     Dates: start: 2021, end: 20211026

REACTIONS (6)
  - Arthralgia [None]
  - Gait inability [None]
  - Neuropathy peripheral [None]
  - Autoimmune disorder [None]
  - Arthropathy [None]
  - Ligament disorder [None]

NARRATIVE: CASE EVENT DATE: 20211021
